FAERS Safety Report 8912699 (Version 1)
Quarter: 2012Q4

REPORT INFORMATION
  Report Type: 
  Country: US (occurrence: US)
  Receive Date: 20121115
  Receipt Date: 20121115
  Transmission Date: 20130627
  Serious: Yes (Other)
  Sender: FDA-Public Use
  Company Number: US-ASTRAZENECA-2010SE15364

PATIENT
  Age: 18356 Day
  Sex: Male

DRUGS (1)
  1. NEXIUM [Suspect]
     Route: 048

REACTIONS (8)
  - Fall [Unknown]
  - Lower limb fracture [Unknown]
  - Hip fracture [Unknown]
  - Lower limb fracture [Unknown]
  - Dyspepsia [Unknown]
  - Dyspepsia [Unknown]
  - Adverse event [Unknown]
  - Drug dose omission [Unknown]
